FAERS Safety Report 6502900-5 (Version None)
Quarter: 2009Q4

REPORT INFORMATION
  Report Type: 
  Country: None (occurrence: None)
  Receive Date: 20091217
  Receipt Date: 20091208
  Transmission Date: 20100525
  Serious: Yes (Other)
  Sender: FDA-Public Use
  Company Number: US-BAYER-200937116NA

PATIENT
  Age: 41 Year
  Sex: Female
  Weight: 63 kg

DRUGS (3)
  1. MIRENA [Suspect]
     Indication: CONTRACEPTION
     Dosage: CONTINUOUS
     Route: 015
     Dates: start: 20060411
  2. LOESTRIN 24 FE [Concomitant]
     Indication: PREMENSTRUAL SYNDROME
     Dates: start: 20090801
  3. PREVACID [Concomitant]

REACTIONS (5)
  - AMENORRHOEA [None]
  - OVARIAN CYST [None]
  - PAIN IN EXTREMITY [None]
  - PREMENSTRUAL SYNDROME [None]
  - THROMBOSIS [None]
